FAERS Safety Report 25178413 (Version 1)
Quarter: 2025Q2

REPORT INFORMATION
  Report Type: Spontaneous
  Country: US (occurrence: None)
  Receive Date: 20250407
  Receipt Date: 20250407
  Transmission Date: 20250717
  Serious: Yes (unspecified)
  Sender: FDA-CTU
  Company Number: None

PATIENT
  Age: 73 Year
  Sex: Male
  Weight: 69.8 kg

DRUGS (11)
  1. HYDROXYPROGESTERONE CAPROATE [Suspect]
     Active Substance: HYDROXYPROGESTERONE CAPROATE
     Indication: Plasma cell myeloma
     Route: 042
     Dates: start: 20250313, end: 20250313
  2. acyclovir (ZOVIRAX) [Concomitant]
  3. ELIQUIS [Concomitant]
     Active Substance: APIXABAN
  4. LIPITOR [Concomitant]
     Active Substance: ATORVASTATIN CALCIUM
  5. ZOFRAN [Concomitant]
     Active Substance: ONDANSETRON HYDROCHLORIDE
  6. PROTONIX [Concomitant]
     Active Substance: PANTOPRAZOLE SODIUM
  7. TYLENOL [Concomitant]
     Active Substance: ACETAMINOPHEN
  8. TUMS [Concomitant]
     Active Substance: CALCIUM CARBONATE
  9. ERGOCALCIFEROL [Concomitant]
     Active Substance: ERGOCALCIFEROL
  10. loperamide (IMODIUM) [Concomitant]
  11. magnesium chloride (SLOW-MAG) [Concomitant]

REACTIONS (3)
  - Cutibacterium test positive [None]
  - Cutibacterium test positive [None]
  - Infection in an immunocompromised host [None]

NARRATIVE: CASE EVENT DATE: 20250319
